FAERS Safety Report 15279881 (Version 1)
Quarter: 2018Q3

REPORT INFORMATION
  Report Type: Spontaneous
  Country: US (occurrence: US)
  Receive Date: 20180730
  Receipt Date: 20180730
  Transmission Date: 20181010
  Serious: No
  Sender: FDA-Public Use
  Company Number: None

PATIENT
  Age: 47 Year
  Sex: Female
  Weight: 52.16 kg

DRUGS (1)
  1. GLATIRAMER [Suspect]
     Active Substance: GLATIRAMER
     Indication: MULTIPLE SCLEROSIS
     Route: 030
     Dates: start: 20180101, end: 20180719

REACTIONS (6)
  - Flushing [None]
  - Throat tightness [None]
  - Dyspnoea [None]
  - Chest discomfort [None]
  - Nausea [None]
  - Tremor [None]

NARRATIVE: CASE EVENT DATE: 20180709
